FAERS Safety Report 9834899 (Version 2)
Quarter: 2014Q2

REPORT INFORMATION
  Report Type: Spontaneous
  Country: US (occurrence: US)
  Receive Date: 20140122
  Receipt Date: 20140620
  Transmission Date: 20141212
  Serious: Yes (Other)
  Sender: FDA-Public Use
  Company Number: US-GLAXOSMITHKLINE-A1057518A

PATIENT
  Age: 75 Year
  Sex: Female

DRUGS (1)
  1. RYTHMOL SR [Suspect]
     Indication: PRODUCT USED FOR UNKNOWN INDICATION
     Dosage: 225MG UNKNOWN
     Route: 065
     Dates: start: 20110930

REACTIONS (3)
  - Dementia [Not Recovered/Not Resolved]
  - Memory impairment [Unknown]
  - Frustration [Unknown]
